FAERS Safety Report 23469081 (Version 2)
Quarter: 2024Q1

REPORT INFORMATION
  Report Type: Spontaneous
  Country: GB (occurrence: None)
  Receive Date: 20240202
  Receipt Date: 20240208
  Transmission Date: 20240410
  Serious: Yes (Life-Threatening, Hospitalization, Other)
  Sender: FDA-Public Use
  Company Number: 2024A024211

PATIENT
  Sex: Male
  Weight: 75 kg

DRUGS (7)
  1. ROSUVASTATIN [Suspect]
     Active Substance: ROSUVASTATIN
  2. ISOSORBIDE [Suspect]
     Active Substance: ISOSORBIDE
  3. ALLOPURINOL [Suspect]
     Active Substance: ALLOPURINOL
  4. ASPIRIN [Suspect]
     Active Substance: ASPIRIN
  5. LANSOPRAZOLE [Suspect]
     Active Substance: LANSOPRAZOLE
  6. NEBIVOLOL [Suspect]
     Active Substance: NEBIVOLOL
  7. ACETAMINOPHEN [Suspect]
     Active Substance: ACETAMINOPHEN

REACTIONS (1)
  - Craniocerebral injury [Recovered/Resolved]

NARRATIVE: CASE EVENT DATE: 20231218
